FAERS Safety Report 4996619-X (Version None)
Quarter: 2006Q2

REPORT INFORMATION
  Report Type: 
  Country: None (occurrence: None)
  Receive Date: 20060509
  Receipt Date: 20060427
  Transmission Date: 20061013
  Serious: Yes (Life-Threatening, Hospitalization)
  Sender: FDA-Public Use
  Company Number: FR-BRISTOL-MYERS SQUIBB COMPANY-13359690

PATIENT
  Age: 68 Year
  Sex: Female

DRUGS (3)
  1. ABILIFY [Suspect]
     Indication: DELIRIUM
     Route: 048
     Dates: start: 20060206, end: 20060208
  2. DEPAKOTE [Interacting]
     Dates: start: 20060206, end: 20060210
  3. NOZINAN [Concomitant]
     Dates: start: 20060206, end: 20060210

REACTIONS (5)
  - DRUG INTERACTION [None]
  - MALAISE [None]
  - PALLOR [None]
  - SYNCOPE [None]
  - UNRESPONSIVE TO PAIN STIMULI [None]
